FAERS Safety Report 8431967-2 (Version None)
Quarter: 2012Q2

REPORT INFORMATION
  Report Type: 
  Country: None (occurrence: None)
  Receive Date: 20120613
  Receipt Date: 20111013
  Transmission Date: 20120825
  Serious: No
  Sender: FDA-Public Use
  Company Number: US-ASTRAZENECA-2011SE61640

PATIENT
  Age: 64 Year
  Sex: Female
  Weight: 43.3 kg

DRUGS (10)
  1. RHINOCORT [Suspect]
     Indication: SINUSITIS
     Dosage: ONE SPRAY PER DAY
     Route: 045
  2. ATENOLOL [Concomitant]
     Indication: BLOOD PRESSURE ABNORMAL
  3. NITROGLYCERIN [Concomitant]
     Indication: BLOOD PRESSURE ABNORMAL
  4. MECLIZINE [Concomitant]
     Indication: NEUROPATHY PERIPHERAL
  5. ASPIRIN [Concomitant]
     Indication: CARDIAC DISORDER
  6. LIDODERM [Concomitant]
     Indication: CARDIAC DISORDER
  7. PROAIR HFA [Concomitant]
     Indication: ASTHMA
  8. ARAFATE SUSPENSION [Concomitant]
     Indication: GASTROOESOPHAGEAL REFLUX DISEASE
  9. ARAFATE SUSPENSION [Concomitant]
     Indication: ULCER
  10. LORAZEPAM [Concomitant]
     Indication: ANXIETY

REACTIONS (4)
  - COUGH [None]
  - DYSPNOEA [None]
  - DIZZINESS [None]
  - CHEST DISCOMFORT [None]
